FAERS Safety Report 25918675 (Version 1)
Quarter: 2025Q4

REPORT INFORMATION
  Report Type: Spontaneous
  Country: EU (occurrence: EU)
  Receive Date: 20251014
  Receipt Date: 20251014
  Transmission Date: 20260118
  Serious: Yes (Life-Threatening, Hospitalization, Other)
  Sender: MYLAN
  Company Number: EU-ORPHANEU-2025006861

PATIENT
  Age: 28 Year
  Sex: Female

DRUGS (20)
  1. METHOTREXATE [Suspect]
     Active Substance: METHOTREXATE
     Indication: Choriocarcinoma
     Dosage: UNK, CYCLE (EVERY 14 DAYS (7 CYCLES OF EMA-CO))
  2. METHOTREXATE [Suspect]
     Active Substance: METHOTREXATE
     Dosage: UNK, CYCLE (EVERY 14 DAYS (7 CYCLES OF EMA-CO))
     Route: 065
  3. METHOTREXATE [Suspect]
     Active Substance: METHOTREXATE
     Dosage: UNK, CYCLE (EVERY 14 DAYS (7 CYCLES OF EMA-CO))
     Route: 065
  4. METHOTREXATE [Suspect]
     Active Substance: METHOTREXATE
     Dosage: UNK, CYCLE (EVERY 14 DAYS (7 CYCLES OF EMA-CO))
  5. DACTINOMYCIN [Suspect]
     Active Substance: DACTINOMYCIN
     Indication: Choriocarcinoma
     Dosage: UNK, CYCLE, (EVERY 14 DAYS (7 CYCLES OF EMA-CO))
  6. DACTINOMYCIN [Suspect]
     Active Substance: DACTINOMYCIN
     Dosage: UNK, CYCLE, (EVERY 14 DAYS (7 CYCLES OF EMA-CO))
     Route: 065
  7. DACTINOMYCIN [Suspect]
     Active Substance: DACTINOMYCIN
     Dosage: UNK, CYCLE, (EVERY 14 DAYS (7 CYCLES OF EMA-CO))
     Route: 065
  8. DACTINOMYCIN [Suspect]
     Active Substance: DACTINOMYCIN
     Dosage: UNK, CYCLE, (EVERY 14 DAYS (7 CYCLES OF EMA-CO))
  9. ETOPOSIDE [Suspect]
     Active Substance: ETOPOSIDE
     Indication: Choriocarcinoma
     Dosage: UNK, CYCLE, EVERY 14 DAYS (7 CYCLES OF EMA-CO)
  10. ETOPOSIDE [Suspect]
     Active Substance: ETOPOSIDE
     Dosage: UNK, CYCLE, EVERY 14 DAYS (7 CYCLES OF EMA-CO)
     Route: 065
  11. ETOPOSIDE [Suspect]
     Active Substance: ETOPOSIDE
     Dosage: UNK, CYCLE, EVERY 14 DAYS (7 CYCLES OF EMA-CO)
     Route: 065
  12. ETOPOSIDE [Suspect]
     Active Substance: ETOPOSIDE
     Dosage: UNK, CYCLE, EVERY 14 DAYS (7 CYCLES OF EMA-CO)
  13. VINCRISTINE [Suspect]
     Active Substance: VINCRISTINE
     Indication: Choriocarcinoma
     Dosage: UNK, CYCLE (EVERY 14 DAYS (7 CYCLES OF EMA-CO))
  14. VINCRISTINE [Suspect]
     Active Substance: VINCRISTINE
     Dosage: UNK, CYCLE (EVERY 14 DAYS (7 CYCLES OF EMA-CO))
     Route: 065
  15. VINCRISTINE [Suspect]
     Active Substance: VINCRISTINE
     Dosage: UNK, CYCLE (EVERY 14 DAYS (7 CYCLES OF EMA-CO))
     Route: 065
  16. VINCRISTINE [Suspect]
     Active Substance: VINCRISTINE
     Dosage: UNK, CYCLE (EVERY 14 DAYS (7 CYCLES OF EMA-CO))
  17. CYCLOPHOSPHAMIDE [Suspect]
     Active Substance: CYCLOPHOSPHAMIDE
     Indication: Choriocarcinoma
     Dosage: UNK, CYCLE (EVERY 14 DAYS (7 CYCLES OF EMA-CO))
  18. CYCLOPHOSPHAMIDE [Suspect]
     Active Substance: CYCLOPHOSPHAMIDE
     Dosage: UNK, CYCLE (EVERY 14 DAYS (7 CYCLES OF EMA-CO))
     Route: 065
  19. CYCLOPHOSPHAMIDE [Suspect]
     Active Substance: CYCLOPHOSPHAMIDE
     Dosage: UNK, CYCLE (EVERY 14 DAYS (7 CYCLES OF EMA-CO))
     Route: 065
  20. CYCLOPHOSPHAMIDE [Suspect]
     Active Substance: CYCLOPHOSPHAMIDE
     Dosage: UNK, CYCLE (EVERY 14 DAYS (7 CYCLES OF EMA-CO))

REACTIONS (2)
  - Vaginal haemorrhage [Recovered/Resolved]
  - Medical device site thrombosis [Unknown]
